FAERS Safety Report 6359217-1 (Version None)
Quarter: 2009Q3

REPORT INFORMATION
  Report Type: 
  Country: None (occurrence: None)
  Receive Date: 20090917
  Receipt Date: 20090908
  Transmission Date: 20100115
  Serious: Yes (Other)
  Sender: FDA-Public Use
  Company Number: PHEH2009US08755

PATIENT
  Sex: Female
  Weight: 85.714 kg

DRUGS (13)
  1. ZOMETA [Suspect]
     Indication: BREAST CANCER METASTATIC
     Dosage: 4 MG, QMO
     Route: 042
  2. ZOMETA [Suspect]
     Indication: PAIN
  3. LISINOPRIL [Concomitant]
     Indication: HYPERTENSION
     Dosage: UNK
     Route: 048
  4. LANTUS [Concomitant]
     Indication: DIABETES MELLITUS
     Dosage: UNK
     Route: 059
  5. ASPIRIN [Concomitant]
     Indication: CARDIOVASCULAR EVENT PROPHYLAXIS
     Dosage: UNK
     Route: 048
  6. HYDROCHLOROTHIAZIDE [Concomitant]
     Indication: HYPERTENSION
     Dosage: UNK
     Route: 048
  7. OXYCODONE [Concomitant]
     Indication: PAIN MANAGEMENT
     Dosage: UNK
     Route: 048
  8. LORAZEPAM [Concomitant]
     Indication: INSOMNIA
     Dosage: HS PRN
     Route: 048
  9. NOVOLOG [Concomitant]
     Dosage: QD AS DIRECTED
     Route: 058
  10. NAVELBINE [Concomitant]
     Indication: BREAST CANCER METASTATIC
     Dosage: UNK
     Route: 042
     Dates: start: 20080301, end: 20090801
  11. XELODA [Concomitant]
     Indication: BREAST CANCER METASTATIC
     Dosage: UNK
     Route: 048
     Dates: start: 20080801, end: 20090801
  12. FULVESTRANT [Concomitant]
     Indication: BREAST CANCER METASTATIC
     Dosage: UNK
     Route: 030
     Dates: start: 20070901, end: 20080801
  13. ANASTROZOLE [Concomitant]
     Indication: BREAST CANCER METASTATIC
     Dosage: UNK
     Route: 048
     Dates: start: 20070901, end: 20080801

REACTIONS (3)
  - BONE DISORDER [None]
  - ORAL DISORDER [None]
  - OSTEONECROSIS [None]
